FAERS Safety Report 9990402 (Version 1)
Quarter: 2014Q1

REPORT INFORMATION
  Report Type: Spontaneous
  Country: US (occurrence: None)
  Receive Date: 20140123
  Receipt Date: 20140123
  Transmission Date: 20141002
  Serious: Yes (Hospitalization)
  Sender: FDA-Public Use
  Company Number: UTC-035452

PATIENT
  Age: 52 Year
  Sex: Male
  Weight: 87.72 kg

DRUGS (2)
  1. REMODULIN [Suspect]
     Dosage: 275.04 UG/KG (0.0191 UG/KG, 1 IN 1 MIN ) , INTRAVENOUS DRIP
     Route: 041
     Dates: start: 20060824
  2. REVATIO (SILDENAFIL CITRATE) [Concomitant]

REACTIONS (1)
  - Device related infection [None]
